FAERS Safety Report 9255685 (Version 1)
Quarter: 2013Q2

REPORT INFORMATION
  Report Type: Spontaneous
  Country: US (occurrence: US)
  Receive Date: 20130425
  Receipt Date: 20130425
  Transmission Date: 20140414
  Serious: Yes (Other)
  Sender: FDA-Public Use
  Company Number: PHHY2013US038457

PATIENT
  Sex: Female

DRUGS (8)
  1. CARBOPLATIN [Suspect]
     Indication: OVARIAN CANCER
     Dosage: UNK UKN, UNK
  2. PACLITAXEL [Suspect]
     Indication: OVARIAN CANCER
  3. GEMCITABINE [Suspect]
     Indication: OVARIAN CANCER
  4. CISPLATIN [Suspect]
     Indication: OVARIAN CANCER
     Route: 033
  5. OXALIPLATIN [Suspect]
     Indication: OVARIAN CANCER
  6. PEGYLATED LIPOSOMAL DOXORUBICIN HYDROCHLORIDE [Suspect]
     Indication: OVARIAN CANCER
     Dosage: 460 MG/M2, UNK
  7. BEVACIZUMAB [Suspect]
     Indication: OVARIAN CANCER
  8. TOPOTECAN [Concomitant]
     Indication: OVARIAN CANCER

REACTIONS (4)
  - Renal failure chronic [Recovering/Resolving]
  - Hypertension [Recovering/Resolving]
  - Ovarian cancer recurrent [Recovering/Resolving]
  - Haemolysis [Recovering/Resolving]
